FAERS Safety Report 4856037-1 (Version None)
Quarter: 2005Q4

REPORT INFORMATION
  Report Type: 
  Country: None (occurrence: None)
  Receive Date: 20051216
  Receipt Date: 20051206
  Transmission Date: 20060501
  Serious: Yes (Other)
  Sender: FDA-Public Use
  Company Number: US-JNJFOC-20051201729

PATIENT
  Age: 8 Year
  Sex: Male
  Weight: 22.68 kg

DRUGS (3)
  1. CONCERTA [Suspect]
     Route: 048
  2. TRAZODONE HCL [Concomitant]
  3. FLUOXETINE [Concomitant]

REACTIONS (1)
  - SYNCOPE [None]
